FAERS Safety Report 20788374 (Version 1)
Quarter: 2022Q2

REPORT INFORMATION
  Report Type: Spontaneous
  Country: HR (occurrence: HR)
  Receive Date: 20220505
  Receipt Date: 20220505
  Transmission Date: 20220721
  Serious: Yes (Life-Threatening, Hospitalization)
  Sender: FDA-Public Use
  Company Number: None

PATIENT
  Age: 15 Year
  Sex: Male

DRUGS (19)
  1. PREDNISOLONE [Suspect]
     Active Substance: PREDNISOLONE
     Indication: B precursor type acute leukaemia
     Dosage: UNK
     Route: 065
  2. PREDNISOLONE [Suspect]
     Active Substance: PREDNISOLONE
     Dosage: 60 MG/M2 PER DAY (INDUCTION CHEMOTHERAPY)
     Route: 065
  3. DOXORUBICIN [Suspect]
     Active Substance: DOXORUBICIN
     Indication: B precursor type acute leukaemia
     Dosage: RE-INDUCTION THERAPY
     Route: 065
  4. DEXAMETHASONE [Suspect]
     Active Substance: DEXAMETHASONE
     Indication: B precursor type acute leukaemia
     Dosage: 20 MG/M2 PER DAY (CONSOLIDATION THERAPY)
     Route: 065
  5. DEXAMETHASONE [Suspect]
     Active Substance: DEXAMETHASONE
     Dosage: 10 MG/M2 PER DAY
     Route: 065
  6. DEXAMETHASONE [Suspect]
     Active Substance: DEXAMETHASONE
     Dosage: RE-INDUCTION THERAPY, TAPERING
     Route: 065
  7. ETOPOSIDE [Suspect]
     Active Substance: ETOPOSIDE
     Indication: B precursor type acute leukaemia
     Dosage: CONSOLIDATION THERAPY
     Route: 065
  8. VINCRISTINE [Suspect]
     Active Substance: VINCRISTINE
     Indication: B precursor type acute leukaemia
     Dosage: INDUCTION CHEMOTHERAPY, CONSOLIDATION THERAPY, RE-INDUCTION THERAPY
     Route: 065
  9. DAUNORUBICIN [Suspect]
     Active Substance: DAUNORUBICIN
     Indication: B precursor type acute leukaemia
     Dosage: INDUCTION CHEMOTHERAPY
     Route: 065
  10. PEG/L-ASPARAGINASE [Suspect]
     Active Substance: PEGASPARGASE
     Indication: B precursor type acute leukaemia
     Dosage: INDUCTION CHEMOTHERAPY, CONSOLIDATION THERAPY, RE-INDUCTION THERAPY
     Route: 065
  11. METHOTREXATE [Suspect]
     Active Substance: METHOTREXATE
     Indication: B precursor type acute leukaemia
     Dosage: INDUCTION CHEMOTHERAPY, EARLY INTENSIFICATION THERAPY, HIGH DOSE CONSOLIDATION THERAPY AND MAINTENAN
     Route: 037
  12. METHOTREXATE [Suspect]
     Active Substance: METHOTREXATE
     Dosage: 5 G/M2 (DURING THE FIRST HIGH-RISK CHEMOTHERAPY BLOCK)
     Route: 037
  13. CYCLOPHOSPHAMIDE [Suspect]
     Active Substance: CYCLOPHOSPHAMIDE
     Indication: B precursor type acute leukaemia
     Dosage: EARLY INTENSIFICATION THERAPY, CONSOLIDATION THERAPY, RE-INDUCTION THERAPY
     Route: 065
  14. CYTARABINE [Suspect]
     Active Substance: CYTARABINE
     Indication: B precursor type acute leukaemia
     Dosage: EARLY INTENSIFICATION THERAPY, RE-INDUCTION THERAPY AND HIGH DOSE CONSOLIDATION THERAPY
     Route: 065
  15. MERCAPTOPURINE [Suspect]
     Active Substance: MERCAPTOPURINE
     Indication: B precursor type acute leukaemia
     Dosage: EARLY INTENSIFICATION THERAPY AND MAINTENANCE THERAPY
     Route: 065
  16. VINDESINE [Suspect]
     Active Substance: VINDESINE
     Indication: B precursor type acute leukaemia
     Dosage: CONSOLIDATION THERAPY
     Route: 065
  17. IFOSFAMIDE [Suspect]
     Active Substance: IFOSFAMIDE
     Indication: B precursor type acute leukaemia
     Dosage: CONSOLIDATION THERAPY
     Route: 065
  18. THIOGUANINE ANHYDROUS [Suspect]
     Active Substance: THIOGUANINE ANHYDROUS
     Indication: B precursor type acute leukaemia
     Dosage: RE-INDUCTION THERAPY
     Route: 065
  19. AMPHOTERICIN B [Suspect]
     Active Substance: AMPHOTERICIN B
     Indication: Product used for unknown indication
     Dosage: UNK
     Route: 065

REACTIONS (21)
  - Acute kidney injury [Recovered/Resolved]
  - Acute polyneuropathy [Recovered/Resolved]
  - Febrile neutropenia [Recovered/Resolved]
  - Platelet count decreased [Recovered/Resolved]
  - Blood fibrinogen decreased [Recovered/Resolved]
  - Hypertransaminasaemia [Recovered/Resolved]
  - Blood bilirubin increased [Recovered/Resolved]
  - Mucosal inflammation [Recovered/Resolved]
  - Gamma-glutamyltransferase increased [Recovered/Resolved]
  - Decreased appetite [Recovered/Resolved]
  - Hypertension [Recovered/Resolved]
  - Adrenal insufficiency [Recovered/Resolved]
  - Hyperglycaemia [Recovered/Resolved]
  - Psychotic disorder [Recovered/Resolved]
  - Hypothyroidism [Recovered/Resolved]
  - Anaemia [Recovered/Resolved]
  - Citrobacter sepsis [Recovered/Resolved]
  - Osteoporosis [Recovered/Resolved]
  - Dermatitis [Recovered/Resolved]
  - Seizure [Recovered/Resolved]
  - Off label use [Unknown]
